FAERS Safety Report 6467620-4 (Version None)
Quarter: 2009Q4

REPORT INFORMATION
  Report Type: 
  Country: None (occurrence: None)
  Receive Date: 20091127
  Receipt Date: 20091113
  Transmission Date: 20100525
  Serious: Yes (Congenital Anomaly, Other)
  Sender: FDA-Public Use
  Company Number: 2009AL007323

PATIENT
  Sex: 0

DRUGS (7)
  1. FLUOXETINE ORAL SOLUTION [Suspect]
     Dosage: 30 MG; TRPL
     Route: 064
  2. GAVISCON [Concomitant]
  3. BECOTIDE [Concomitant]
  4. ALBUTEROL [Concomitant]
  5. LACTULOSE [Concomitant]
  6. AMOXICILLIN [Concomitant]
  7. AMOXICILLIN AND CLAVULANATE POTASSIUM [Concomitant]

REACTIONS (2)
  - HYPOSPADIAS [None]
  - MATERNAL DRUGS AFFECTING FOETUS [None]
